FAERS Safety Report 11141631 (Version 1)
Quarter: 2015Q2

REPORT INFORMATION
  Report Type: Spontaneous
  Country: DE (occurrence: DE)
  Receive Date: 20150527
  Receipt Date: 20150527
  Transmission Date: 20150821
  Serious: Yes (Other)
  Sender: FDA-Public Use
  Company Number: DE-MYLANLABS-2015M1017360

PATIENT

DRUGS (1)
  1. ESTRADIOL. [Suspect]
     Active Substance: ESTRADIOL
     Dosage: 2MG DAILY FOR THE PAST 22 YEARS UNTIL ONE YEAR BEFORE
     Route: 065

REACTIONS (2)
  - Kayser-Fleischer ring [Unknown]
  - Dementia Alzheimer^s type [Unknown]
